FAERS Safety Report 24360856 (Version 1)
Quarter: 2024Q3

REPORT INFORMATION
  Report Type: Report from Study
  Country: EG (occurrence: EG)
  Receive Date: 20240925
  Receipt Date: 20240925
  Transmission Date: 20241017
  Serious: Yes (Hospitalization, Other)
  Sender: ABBVIE
  Company Number: EG-ABBVIE-5930922

PATIENT
  Age: 29 Year
  Sex: Male

DRUGS (8)
  1. HUMIRA [Suspect]
     Active Substance: ADALIMUMAB
     Indication: Rheumatoid arthritis
     Dosage: START DATE TEXT: ALMOST EARLY 2022, ONE SYRINGE
     Route: 058
     Dates: start: 2022, end: 2022
  2. CYANOCOBALAMIN\PYRIDOXINE\THIAMINE [Suspect]
     Active Substance: CYANOCOBALAMIN\PYRIDOXINE\THIAMINE
     Indication: Renal disorder
     Dosage: START DATE TEXT: STARTED WITH HUMIRA
     Route: 065
     Dates: start: 2022
  3. SERTRALINE HYDROCHLORIDE [Suspect]
     Active Substance: SERTRALINE HYDROCHLORIDE
     Indication: Product used for unknown indication
     Dosage: FORM STRENGTH: 50?FORM STRENGTH UNITS: MILLIGRAM?START DATE TEXT: STARTED WITH HUMIRA
     Route: 065
     Dates: start: 2022
  4. ENBREL [Suspect]
     Active Substance: ETANERCEPT
     Indication: Rheumatoid arthritis
     Route: 065
     Dates: start: 2023
  5. NEXIUM [Suspect]
     Active Substance: ESOMEPRAZOLE MAGNESIUM
     Indication: Gastrointestinal disorder
     Dosage: START DATE TEXT: STARTED WITH HUMIRA
     Route: 065
     Dates: start: 2022
  6. GLUCOPHAGE XR [Suspect]
     Active Substance: METFORMIN HYDROCHLORIDE
     Indication: Diabetes mellitus
     Dosage: FORM STRENGTH: 1000?FORM STRENGTH UNITS: MILLIGRAM?START DATE TEXT: STARTED WITH HUMIRA
     Route: 048
     Dates: start: 2022
  7. METHOTREXATE [Suspect]
     Active Substance: METHOTREXATE
     Indication: Product used for unknown indication
     Dosage: START DATE TEXT: STARTED WITH HUMIRA
     Route: 065
     Dates: start: 2022
  8. ARCOXIA [Suspect]
     Active Substance: ETORICOXIB
     Indication: Arthritis
     Dosage: FORM STRENGTH: 90?FORM STRENGTH UNITS: MILLIGRAM?START DATE TEXT: STARTED WITH HUMIRA
     Route: 065
     Dates: start: 2022

REACTIONS (6)
  - Large intestine perforation [Unknown]
  - Large intestinal ulcer [Unknown]
  - Large intestinal haemorrhage [Unknown]
  - Fibromyalgia [Unknown]
  - Blood glucose increased [Unknown]
  - Drug ineffective [Recovered/Resolved]

NARRATIVE: CASE EVENT DATE: 20220101
